FAERS Safety Report 4785315-X (Version None)
Quarter: 2005Q3

REPORT INFORMATION
  Report Type: 
  Country: None (occurrence: None)
  Receive Date: 20050914
  Receipt Date: 20050706
  Transmission Date: 20060218
  Serious: Yes (Other)
  Sender: FDA-Public Use
  Company Number: 163-20785-050700065 (0)

PATIENT
  Sex: 0

DRUGS (6)
  1. THALIDOMIDE OR PLACEBO (THALIDOMIDE) (CAPSULES) [Suspect]
     Indication: PROSTATIC INTRAEPITHELIAL NEOPLASIA
     Dosage: SEE IMAGE
     Route: 048
     Dates: start: 20010430
  2. THALIDOMIDE OR PLACEBO (THALIDOMIDE) (CAPSULES) [Suspect]
     Indication: PROSTATIC INTRAEPITHELIAL NEOPLASIA
     Dosage: SEE IMAGE
     Route: 048
     Dates: start: 20020805
  3. THALIDOMIDE OR PLACEBO (THALIDOMIDE) (CAPSULES) [Suspect]
     Indication: PROSTATIC INTRAEPITHELIAL NEOPLASIA
     Dosage: SEE IMAGE
     Route: 048
     Dates: start: 20030908
  4. (L) (LEUPROLIDE OR (G) GOSERELIN [Suspect]
     Indication: PROSTATIC INTRAEPITHELIAL NEOPLASIA
     Dosage: (L) 7.5 MG IM OR (G) 3.6 MG SC Q28D FOR 6 CYCLES OR (L) 22.5 MG IM OR (G) 10.8 MG SC Q84D FOR 2 CYCL
     Dates: start: 20010430
  5. (L) (LEUPROLIDE OR (G) GOSERELIN [Suspect]
     Indication: PROSTATIC INTRAEPITHELIAL NEOPLASIA
     Dosage: (L) 7.5 MG IM OR (G) 3.6 MG SC Q28D FOR 6 CYCLES OR (L) 22.5 MG IM OR (G) 10.8 MG SC Q84D FOR 2 CYCL
     Dates: start: 20020805
  6. (L) (LEUPROLIDE OR (G) GOSERELIN [Suspect]
     Indication: PROSTATIC INTRAEPITHELIAL NEOPLASIA
     Dosage: (L) 7.5 MG IM OR (G) 3.6 MG SC Q28D FOR 6 CYCLES OR (L) 22.5 MG IM OR (G) 10.8 MG SC Q84D FOR 2 CYCL
     Dates: start: 20030908

REACTIONS (4)
  - COGNITIVE DISORDER [None]
  - ERECTILE DYSFUNCTION [None]
  - MYOCARDIAL INFARCTION [None]
  - MYOCARDIAL ISCHAEMIA [None]
